FAERS Safety Report 12325696 (Version 2)
Quarter: 2016Q2

REPORT INFORMATION
  Report Type: Spontaneous
  Country: US (occurrence: US)
  Receive Date: 20160503
  Receipt Date: 20160615
  Transmission Date: 20160815
  Serious: Yes (Other)
  Sender: FDA-Public Use
  Company Number: PHEH2016US010594

PATIENT
  Age: 51 Year
  Sex: Male

DRUGS (1)
  1. ILARIS [Suspect]
     Active Substance: CANAKINUMAB
     Indication: JUVENILE IDIOPATHIC ARTHRITIS
     Dosage: 150 MG, QMO (EVERY FOUR WEEKS)
     Route: 058
     Dates: start: 20160219, end: 201604

REACTIONS (8)
  - Dyspnoea [Unknown]
  - Vomiting [Unknown]
  - Gastrointestinal disorder [Recovered/Resolved]
  - Pneumonia [Unknown]
  - Pyrexia [Recovered/Resolved]
  - Diarrhoea [Unknown]
  - Leukopenia [Recovered/Resolved]
  - Full blood count decreased [Unknown]

NARRATIVE: CASE EVENT DATE: 201602
